FAERS Safety Report 8742396 (Version 2)
Quarter: 2012Q4

REPORT INFORMATION
  Report Type: 
  Country: CN (occurrence: CN)
  Receive Date: 20120824
  Receipt Date: 20120907
  Transmission Date: 20130627
  Serious: Yes (Death, Disabling)
  Sender: FDA-Public Use
  Company Number: CN-ASTELLAS-2012US007175

PATIENT
  Age: 73 None
  Sex: Male
  Weight: 60 kg

DRUGS (1)
  1. TARCEVA [Suspect]
     Indication: NON-SMALL CELL LUNG CANCER
     Dosage: 150 mg, UID/QD
     Route: 048
     Dates: start: 201203, end: 20120610

REACTIONS (3)
  - Blindness [Not Recovered/Not Resolved]
  - Purulence [Unknown]
  - Malignant neoplasm progression [Fatal]
